FAERS Safety Report 9143955 (Version 1)
Quarter: 2013Q1

REPORT INFORMATION
  Report Type: Spontaneous
  Country: JP (occurrence: JP)
  Receive Date: 20130306
  Receipt Date: 20130306
  Transmission Date: 20140127
  Serious: Yes (Hospitalization)
  Sender: FDA-Public Use
  Company Number: JP-WATSON-2013-03474

PATIENT
  Age: 59 Year
  Sex: Female

DRUGS (2)
  1. PREDNISOLONE (UNKNOWN) [Suspect]
     Indication: DERMATOMYOSITIS
     Dosage: 20 MG, DAILY
     Route: 065
  2. CYCLOSPORINE [Suspect]
     Indication: DERMATOMYOSITIS
     Dosage: 100 MG, DAILY
     Route: 065

REACTIONS (2)
  - Pneumatosis intestinalis [Recovered/Resolved]
  - Intestinal obstruction [Recovered/Resolved]
